FAERS Safety Report 15613992 (Version 1)
Quarter: 2018Q4

REPORT INFORMATION
  Report Type: Report from Study
  Country: US (occurrence: US)
  Receive Date: 20181113
  Receipt Date: 20181113
  Transmission Date: 20190205
  Serious: Yes (Hospitalization)
  Sender: FDA-Public Use
  Company Number: US-BAYER-2018-205875

PATIENT
  Sex: Female

DRUGS (12)
  1. VENTOLIN [Concomitant]
     Active Substance: ALBUTEROL SULFATE
  2. SPIRONOLACTONE. [Concomitant]
     Active Substance: SPIRONOLACTONE
  3. PROMETHAZINE W/CODEINE [Concomitant]
     Active Substance: CODEINE\PROMETHAZINE
  4. BACLOFEN. [Concomitant]
     Active Substance: BACLOFEN
  5. FUROSEMIDE. [Concomitant]
     Active Substance: FUROSEMIDE
  6. DICYCLOMINE [Concomitant]
     Active Substance: DICYCLOMINE HYDROCHLORIDE
  7. NEXAVAR [Suspect]
     Active Substance: SORAFENIB
     Indication: HEPATOCELLULAR CARCINOMA
     Dosage: 400 MG, BID
     Dates: end: 20181104
  8. DIPHENHYDRAMINE. [Concomitant]
     Active Substance: DIPHENHYDRAMINE
  9. LACTULOSE. [Concomitant]
     Active Substance: LACTULOSE
  10. XIFAXAN [Concomitant]
     Active Substance: RIFAXIMIN
  11. METOPROLOL. [Concomitant]
     Active Substance: METOPROLOL
  12. ONDANSETRON [Concomitant]
     Active Substance: ONDANSETRON

REACTIONS (4)
  - Feeding disorder [Not Recovered/Not Resolved]
  - Dysphagia [Not Recovered/Not Resolved]
  - Blister [Not Recovered/Not Resolved]
  - Palmar erythema [Not Recovered/Not Resolved]

NARRATIVE: CASE EVENT DATE: 2018
